FAERS Safety Report 6554552-6 (Version None)
Quarter: 2010Q1

REPORT INFORMATION
  Report Type: 
  Country: None (occurrence: None)
  Receive Date: 20100127
  Receipt Date: 20100122
  Transmission Date: 20100710
  Serious: Yes (Death)
  Sender: FDA-Public Use
  Company Number: PHHY2010JP03634

PATIENT
  Age: 64 Year
  Sex: Male
  Weight: 65 kg

DRUGS (15)
  1. DIOVAN [Suspect]
     Indication: HYPERTENSION
     Dosage: 40 MG, QD
     Route: 048
     Dates: start: 20080825, end: 20090420
  2. DIOVAN [Suspect]
     Dosage: 80 MG, BID
     Route: 048
     Dates: start: 20090703, end: 20090807
  3. DIOVAN [Suspect]
     Dosage: 80 MG, QD
     Route: 048
     Dates: start: 20090904, end: 20091127
  4. LASIX [Concomitant]
     Dosage: 40 MG, TID (2 TABLETS IN THE MORNING, ONE TABLET IN THE EVENING)
     Dates: start: 20090623, end: 20091127
  5. FERROMIA [Concomitant]
     Route: 048
  6. JUVELA [Concomitant]
     Route: 048
  7. LUPRAC [Concomitant]
     Route: 048
  8. TAKEPRON [Concomitant]
     Route: 048
  9. CRAVIT [Concomitant]
     Route: 048
  10. ASPIRIN [Concomitant]
     Route: 048
  11. FERRUM ^GREEN CROSS^ [Concomitant]
     Route: 048
  12. NORVASC [Concomitant]
     Route: 048
  13. SALOBEL [Concomitant]
     Route: 048
  14. MAGMITT KENEI [Concomitant]
     Route: 048
  15. PANSPORIN T [Concomitant]
     Route: 048

REACTIONS (2)
  - OEDEMA [None]
  - RENAL FAILURE [None]
